FAERS Safety Report 20043324 (Version 1)
Quarter: 2021Q4

REPORT INFORMATION
  Report Type: Spontaneous
  Country: US (occurrence: US)
  Receive Date: 20211108
  Receipt Date: 20211108
  Transmission Date: 20220303
  Serious: No
  Sender: FDA-Public Use
  Company Number: US-PERRIGO-21US003358

PATIENT
  Age: 67 Year
  Sex: Female
  Weight: 68.027 kg

DRUGS (2)
  1. MESALAMINE [Suspect]
     Active Substance: MESALAMINE
     Indication: Anorectal discomfort
     Dosage: 4 G, NIGHTLY
     Route: 054
     Dates: start: 20210223, end: 20210302
  2. MESALAMINE [Suspect]
     Active Substance: MESALAMINE
     Indication: Rectal haemorrhage
     Dosage: 4 G, SINGLE
     Route: 054
     Dates: start: 20210303, end: 20210303

REACTIONS (2)
  - Abdominal pain upper [Recovered/Resolved]
  - Off label use [Recovered/Resolved]

NARRATIVE: CASE EVENT DATE: 20210223
